FAERS Safety Report 17725252 (Version 1)
Quarter: 2020Q2

REPORT INFORMATION
  Report Type: Spontaneous
  Country: US (occurrence: US)
  Receive Date: 20200429
  Receipt Date: 20200429
  Transmission Date: 20200714
  Serious: Yes (Other)
  Sender: FDA-Public Use
  Company Number: NVSC2020US105936

PATIENT

DRUGS (1)
  1. PHENYLEPHRINE [Suspect]
     Active Substance: PHENYLEPHRINE HYDROCHLORIDE
     Indication: PRODUCT USED FOR UNKNOWN INDICATION
     Dosage: UNK
     Route: 065

REACTIONS (9)
  - Troponin increased [Unknown]
  - Hypotension [Unknown]
  - Hypertension [Unknown]
  - Wrong technique in device usage process [Unknown]
  - Bradycardia [Unknown]
  - Tachycardia [Unknown]
  - Electrocardiogram ST segment abnormal [Unknown]
  - Ejection fraction decreased [Unknown]
  - Arrhythmia [Unknown]

NARRATIVE: CASE EVENT DATE: 20200309
